FAERS Safety Report 7752626-5 (Version None)
Quarter: 2011Q3

REPORT INFORMATION
  Report Type: 
  Country: None (occurrence: None)
  Receive Date: 20110913
  Receipt Date: 20110830
  Transmission Date: 20111222
  Serious: Yes (Other)
  Sender: FDA-Public Use
  Company Number: FK201101835

PATIENT
  Sex: Female

DRUGS (2)
  1. PACLITAXEL [Suspect]
     Indication: BREAST CANCER
     Dosage: 1 IN WK
  2. AVASTIN [Suspect]
     Indication: BREAST CANCER
     Dosage: 1 IN 2 WK

REACTIONS (2)
  - RECTAL HAEMORRHAGE [None]
  - DIVERTICULUM [None]
